FAERS Safety Report 17088749 (Version 1)
Quarter: 2019Q4

REPORT INFORMATION
  Report Type: Spontaneous
  Country: CA (occurrence: CA)
  Receive Date: 20191128
  Receipt Date: 20191128
  Transmission Date: 20200122
  Serious: Yes (Other)
  Sender: FDA-Public Use
  Company Number: CA-TEVA-2019-CA-1142363

PATIENT
  Age: 57 Year
  Sex: Female

DRUGS (1)
  1. METHOTREXATE. [Suspect]
     Active Substance: METHOTREXATE
     Indication: PRODUCT USED FOR UNKNOWN INDICATION
     Route: 065

REACTIONS (8)
  - Vomiting [Unknown]
  - Hepatic enzyme increased [Unknown]
  - Nausea [Unknown]
  - Disease recurrence [Unknown]
  - Dyspepsia [Unknown]
  - Hepatitis [Unknown]
  - Drug intolerance [Unknown]
  - Synovitis [Unknown]
